FAERS Safety Report 8909399 (Version 1)
Quarter: 2012Q4

REPORT INFORMATION
  Report Type: 
  Country: US (occurrence: US)
  Receive Date: 20121115
  Receipt Date: 20121115
  Transmission Date: 20130627
  Serious: Yes (Death)
  Sender: FDA-Public Use
  Company Number: US-SANOFI-AVENTIS-2012SA081999

PATIENT
  Sex: Male

DRUGS (1)
  1. PLAVIX [Suspect]
     Route: 048

REACTIONS (1)
  - Cardiac failure congestive [Fatal]
